FAERS Safety Report 7166754-9 (Version None)
Quarter: 2010Q4

REPORT INFORMATION
  Report Type: 
  Country: None (occurrence: None)
  Receive Date: 20101213
  Receipt Date: 20101213
  Transmission Date: 20110411
  Serious: No
  Sender: FDA-Public Use
  Company Number: None

PATIENT
  Age: 62 Year
  Sex: Male
  Weight: 88.4514 kg

DRUGS (1)
  1. TANEZUMAB -PHASE III STUDY- UNKNOWN -BLIND STUDY- PFIZER [Suspect]
     Indication: ARTHRALGIA
     Dosage: UNKNOWN DOSE 1/ 8 WEEKS IV
     Route: 042
     Dates: start: 20090615, end: 20100615

REACTIONS (1)
  - ARTHROPATHY [None]
